FAERS Safety Report 4913206-X (Version None)
Quarter: 2006Q1

REPORT INFORMATION
  Report Type: 
  Country: None (occurrence: None)
  Receive Date: 20060215
  Receipt Date: 20051004
  Transmission Date: 20060701
  Serious: Yes (Hospitalization, Other)
  Sender: FDA-Public Use
  Company Number: US-MERCK-0510USA03165

PATIENT
  Age: 57 Year
  Sex: Male
  Weight: 100 kg

DRUGS (14)
  1. VIOXX [Suspect]
     Indication: ARTHRITIS
     Route: 048
     Dates: start: 19990101, end: 20020521
  2. VIOXX [Suspect]
     Route: 048
     Dates: start: 20031224, end: 20040928
  3. VIOXX [Suspect]
     Route: 048
     Dates: start: 20010119, end: 20010527
  4. VIOXX [Suspect]
     Route: 048
     Dates: start: 20010701, end: 20010924
  5. VIOXX [Suspect]
     Route: 048
     Dates: start: 20011015, end: 20020614
  6. VIOXX [Suspect]
     Route: 048
     Dates: start: 20020811, end: 20020911
  7. HUMULIN [Concomitant]
     Route: 065
  8. GLYBURIDE [Concomitant]
     Route: 065
  9. CARDURA [Concomitant]
     Route: 065
  10. ZYRTEC [Concomitant]
     Route: 065
  11. FLEXERIL [Concomitant]
     Route: 048
  12. WELLBUTRIN [Concomitant]
     Route: 065
  13. MERIDIA [Concomitant]
     Route: 065
  14. CIPRO [Concomitant]
     Route: 065

REACTIONS (16)
  - AORTIC VALVE INCOMPETENCE [None]
  - AORTIC VALVE SCLEROSIS [None]
  - ATRIOVENTRICULAR BLOCK FIRST DEGREE [None]
  - BACK DISORDER [None]
  - CAROTID ARTERY DISEASE [None]
  - CHEST DISCOMFORT [None]
  - CORONARY ARTERY OCCLUSION [None]
  - CORONARY ARTERY STENOSIS [None]
  - DYSPNOEA [None]
  - GALLBLADDER DISORDER [None]
  - GALLBLADDER OPERATION [None]
  - MITRAL VALVE INCOMPETENCE [None]
  - SILENT MYOCARDIAL INFARCTION [None]
  - TRICUSPID VALVE INCOMPETENCE [None]
  - VENTRICULAR DYSFUNCTION [None]
  - VENTRICULAR HYPERTROPHY [None]
